FAERS Safety Report 4418132-0 (Version None)
Quarter: 2004Q3

REPORT INFORMATION
  Report Type: 
  Country: None (occurrence: None)
  Receive Date: 20040805
  Receipt Date: 20040805
  Transmission Date: 20050211
  Serious: Yes (Hospitalization)
  Sender: FDA-Public Use
  Company Number: None

PATIENT
  Age: 74 Year
  Sex: Male
  Weight: 92.6 kg

DRUGS (9)
  1. INTEGRILIN [Suspect]
     Indication: ANTIPLATELET THERAPY
     Dosage: 2(8.5 ML BOLUSES) 7.5ML/HR IV
     Route: 042
     Dates: start: 20040727, end: 20040728
  2. MIDAZOLAM [Concomitant]
  3. FENTANYL [Concomitant]
  4. NITROGLYCERIN [Concomitant]
  5. CEFAZOLIN [Concomitant]
  6. CLOPIDOGREL [Concomitant]
  7. ASPIRIN [Concomitant]
  8. PEPCID [Concomitant]
  9. ACETYLSALICYLATE [Concomitant]

REACTIONS (2)
  - BLOOD CREATINE PHOSPHOKINASE MB INCREASED [None]
  - POST PROCEDURAL COMPLICATION [None]
